FAERS Safety Report 14899654 (Version 3)
Quarter: 2018Q2

REPORT INFORMATION
  Report Type: Spontaneous
  Country: CA (occurrence: CA)
  Receive Date: 20180516
  Receipt Date: 20180615
  Transmission Date: 20180711
  Serious: Yes (Disabling, Other)
  Sender: FDA-Public Use
  Company Number: CA-ASTRAZENECA-2018SE63227

PATIENT
  Age: 674 Month
  Sex: Female
  Weight: 72.6 kg

DRUGS (4)
  1. TAMOXIFEN [Suspect]
     Active Substance: TAMOXIFEN
     Indication: BREAST CANCER FEMALE
     Route: 048
     Dates: start: 2011
  2. LIXIANA [Concomitant]
     Active Substance: EDOXABAN TOSYLATE
     Indication: ANTICOAGULANT THERAPY
     Route: 048
     Dates: start: 201801
  3. LYNPARZA [Suspect]
     Active Substance: OLAPARIB
     Indication: OVARIAN CANCER
     Dosage: TWO TIMES A DAY
     Route: 048
     Dates: start: 201801, end: 201803
  4. LYNPARZA [Suspect]
     Active Substance: OLAPARIB
     Indication: OVARIAN CANCER
     Dosage: TWO TIMES A DAY
     Route: 048
     Dates: start: 20180426

REACTIONS (9)
  - Pneumonia [Recovered/Resolved]
  - Carbohydrate antigen 125 increased [Unknown]
  - Ovarian cancer [Not Recovered/Not Resolved]
  - Fatigue [Recovering/Resolving]
  - Pulmonary embolism [Recovered/Resolved]
  - Malaise [Recovering/Resolving]
  - Asthenia [Recovering/Resolving]
  - Decreased appetite [Recovering/Resolving]
  - Intentional product use issue [Not Recovered/Not Resolved]

NARRATIVE: CASE EVENT DATE: 201412
